FAERS Safety Report 24707815 (Version 1)
Quarter: 2024Q4

REPORT INFORMATION
  Report Type: Spontaneous
  Country: US (occurrence: US)
  Receive Date: 20241206
  Receipt Date: 20241206
  Transmission Date: 20250115
  Serious: No
  Sender: NOVO NORDISK
  Company Number: US-NOVOPROD-1236735

PATIENT
  Age: 68 Year
  Sex: Female

DRUGS (1)
  1. NOVOLIN 70/30 [Suspect]
     Active Substance: INSULIN HUMAN
     Indication: Type 2 diabetes mellitus
     Dosage: 8 IU
     Route: 058
     Dates: start: 202208, end: 202301

REACTIONS (3)
  - Cataract [Unknown]
  - Vision blurred [Unknown]
  - Colour blindness [Unknown]

NARRATIVE: CASE EVENT DATE: 20221201
